FAERS Safety Report 9956362 (Version 2)
Quarter: 2014Q1

REPORT INFORMATION
  Report Type: Spontaneous
  Country: US (occurrence: US)
  Receive Date: 20140304
  Receipt Date: 20140306
  Transmission Date: 20141002
  Serious: Yes (Other)
  Sender: FDA-Public Use
  Company Number: CHPA2014US003380

PATIENT
  Age: 75 Year
  Sex: Female

DRUGS (1)
  1. VOLTAREN GEL [Suspect]
     Indication: ARTHRITIS
     Dosage: UNK, 3 OR 4 X A DAY
     Route: 061
     Dates: start: 2011, end: 2012

REACTIONS (2)
  - Breast cancer [Recovered/Resolved]
  - Underdose [Unknown]
